FAERS Safety Report 22127940 (Version 1)
Quarter: 2023Q1

REPORT INFORMATION
  Report Type: Spontaneous
  Country: US (occurrence: US)
  Receive Date: 20230323
  Receipt Date: 20230323
  Transmission Date: 20230417
  Serious: No
  Sender: FDA-Public Use
  Company Number: US-ALLERGAN-2236185US

PATIENT
  Sex: Female

DRUGS (2)
  1. LINZESS [Suspect]
     Active Substance: LINACLOTIDE
     Indication: Irritable bowel syndrome
     Dosage: 2ND BOTTLE
  2. LINZESS [Suspect]
     Active Substance: LINACLOTIDE
     Dosage: 1ST BOTTLE

REACTIONS (3)
  - Therapeutic response decreased [Unknown]
  - Product physical issue [Unknown]
  - Product physical consistency issue [Unknown]
